FAERS Safety Report 8572501-6 (Version None)
Quarter: 2012Q3

REPORT INFORMATION
  Report Type: 
  Country: None (occurrence: None)
  Receive Date: 20120806
  Receipt Date: 20120723
  Transmission Date: 20120928
  Serious: Yes (Other)
  Sender: FDA-Public Use
  Company Number: US-ROCHE-1081165

PATIENT
  Age: 45 Year
  Sex: Female

DRUGS (10)
  1. XELODA [Suspect]
     Indication: BREAST CANCER METASTATIC
  2. GEMCITABINE HYDROCHLORIDE [Concomitant]
     Indication: BREAST CANCER METASTATIC
  3. HERCEPTIN [Suspect]
     Indication: BREAST CANCER METASTATIC
  4. NAVELBINE [Concomitant]
     Indication: BREAST CANCER METASTATIC
  5. CARBOPLATIN [Concomitant]
     Indication: BREAST CANCER METASTATIC
  6. ADRIAMYCIN PFS [Concomitant]
     Dates: start: 20010101
  7. TYKERB [Concomitant]
     Indication: BREAST CANCER METASTATIC
  8. CYTOXAN [Concomitant]
     Dates: start: 20010101
  9. TAXOL [Concomitant]
     Indication: BREAST CANCER METASTATIC
     Dates: start: 20010101
  10. TAXOTERE [Concomitant]
     Indication: BREAST CANCER METASTATIC

REACTIONS (4)
  - METASTASES TO LUNG [None]
  - LIVER FUNCTION TEST ABNORMAL [None]
  - METASTASES TO LIVER [None]
  - EJECTION FRACTION DECREASED [None]
